FAERS Safety Report 6613218-4 (Version None)
Quarter: 2010Q1

REPORT INFORMATION
  Report Type: 
  Country: None (occurrence: None)
  Receive Date: 20100304
  Receipt Date: 20100222
  Transmission Date: 20100710
  Serious: Yes (Other)
  Sender: FDA-Public Use
  Company Number: PL-JNJFOC-20100210816

PATIENT
  Age: 17 Year
  Sex: Female

DRUGS (4)
  1. IBUPROFEN [Suspect]
     Indication: DRUG USE FOR UNKNOWN INDICATION
  2. VERAPAMIL [Suspect]
     Indication: SUICIDE ATTEMPT
  3. AMLODIPINE [Suspect]
     Indication: SUICIDE ATTEMPT
  4. METOPROLOL TARTRATE [Suspect]
     Indication: SUICIDE ATTEMPT

REACTIONS (3)
  - CARDIOGENIC SHOCK [None]
  - DRUG TOXICITY [None]
  - SUICIDE ATTEMPT [None]
